FAERS Safety Report 4974325-5 (Version None)
Quarter: 2006Q2

REPORT INFORMATION
  Report Type: 
  Country: None (occurrence: None)
  Receive Date: 20060417
  Receipt Date: 20050726
  Transmission Date: 20061013
  Serious: Yes (Hospitalization, Disabling)
  Sender: FDA-Public Use
  Company Number: US-MERCK-0507USA04128

PATIENT
  Age: 53 Year
  Sex: Female
  Weight: 105 kg

DRUGS (15)
  1. PAXIL CR [Concomitant]
     Route: 065
  2. MOBIC [Concomitant]
     Route: 065
  3. LORAZEPAM [Concomitant]
     Route: 065
  4. VIOXX [Suspect]
     Indication: BACK PAIN
     Route: 048
     Dates: start: 20040510, end: 20040912
  5. ACTOS [Concomitant]
     Route: 065
  6. HYDROCHLOROTHIAZIDE [Concomitant]
     Route: 065
  7. ASPIRIN [Concomitant]
     Route: 065
  8. ACIPHEX [Concomitant]
     Route: 065
  9. PRAVACHOL [Concomitant]
     Route: 065
  10. CLONIDINE [Concomitant]
     Route: 065
  11. TOPROL-XL [Concomitant]
     Route: 065
  12. NEURONTIN [Concomitant]
     Indication: PAIN
     Route: 065
  13. STARLIX [Concomitant]
     Route: 065
  14. LEXAPRO [Concomitant]
     Route: 065
  15. PLAVIX [Concomitant]
     Route: 065

REACTIONS (11)
  - ANXIETY [None]
  - CHRONIC OBSTRUCTIVE PULMONARY DISEASE [None]
  - CORONARY ARTERY DISEASE [None]
  - DEPRESSION [None]
  - DIABETES MELLITUS [None]
  - HYPERTENSION [None]
  - INTERVERTEBRAL DISC DEGENERATION [None]
  - LOBAR PNEUMONIA [None]
  - PAIN [None]
  - PULMONARY EMBOLISM [None]
  - STRESS [None]
